FAERS Safety Report 7105325-7 (Version None)
Quarter: 2010Q4

REPORT INFORMATION
  Report Type: 
  Country: None (occurrence: None)
  Receive Date: 20101116
  Receipt Date: 20101104
  Transmission Date: 20110411
  Serious: Yes (Other)
  Sender: FDA-Public Use
  Company Number: ES-ELI_LILLY_AND_COMPANY-ES201011001347

PATIENT
  Sex: Female
  Weight: 88 kg

DRUGS (11)
  1. FORTEO [Suspect]
     Indication: OSTEOPOROSIS
     Dosage: 20 UG, DAILY (1/D)
     Route: 058
     Dates: start: 20100301
  2. ASPIRIN [Concomitant]
     Indication: SENSATION OF BLOOD FLOW
     Dosage: 1 D/F, DAILY (1/D)
     Route: 050
  3. PANTOPRAZOLE SODIUM [Concomitant]
     Indication: GASTRIC DISORDER
     Dosage: 1 D/F, EVERY 12 HOURS
     Route: 050
  4. DOXAZOSINA [Concomitant]
     Indication: HYPERTENSION
     Dosage: 1 D/F, DAILY (1/D)
     Route: 050
  5. OLMETEC [Concomitant]
     Indication: HYPERTENSION
     Dosage: UNK, EVERY 12 HOURS
     Route: 048
  6. AMILORIDE HCL AND HYDROCHLOROTHIAZIDE [Concomitant]
     Indication: HYPERTENSION
     Dosage: 1 D/F, DAILY (1/D)
     Route: 048
  7. NATECAL D [Concomitant]
     Indication: OSTEOPOROSIS
     Dosage: 1 D/F, DAILY (1/D)
     Route: 048
  8. ACFOL [Concomitant]
     Dosage: 1 D/F, DAILY (1/D)
     Route: 048
  9. INSULIN NPH                        /01223208/ [Concomitant]
     Indication: DIABETES MELLITUS
     Dosage: 1 D/F, EVERY 12 HOURS DEPENDING ON GLYCAEMIA
     Route: 058
  10. FORTASEC [Concomitant]
     Indication: DIARRHOEA
     Dosage: UNK, AS NEEDED
     Route: 048
  11. PRIMPERAN [Concomitant]
     Indication: NAUSEA
     Dosage: UNK, AS NEEDED
     Route: 048

REACTIONS (4)
  - DIARRHOEA [None]
  - NAUSEA [None]
  - UTERINE POLYP [None]
  - VOMITING [None]
